FAERS Safety Report 8238351-5 (Version None)
Quarter: 2012Q1

REPORT INFORMATION
  Report Type: 
  Country: None (occurrence: None)
  Receive Date: 20120327
  Receipt Date: 20120313
  Transmission Date: 20120608
  Serious: Yes (Other)
  Sender: FDA-Public Use
  Company Number: CA-ROCHE-1049347

PATIENT
  Sex: Female
  Weight: 52.664 kg

DRUGS (6)
  1. GRAVOL TAB [Concomitant]
  2. METHYLPREDNISOLONE [Concomitant]
     Indication: PREMEDICATION
     Route: 042
     Dates: start: 20120216, end: 20120216
  3. XELODA [Suspect]
     Indication: PRODUCT USED FOR UNKNOWN INDICATION
     Route: 048
  4. ACETAMINOPHEN [Concomitant]
     Indication: PREMEDICATION
     Route: 048
     Dates: start: 20120216, end: 20120216
  5. AVASTIN [Suspect]
     Indication: BREAST CANCER
     Dosage: 27/OCT/2011 870MG, 22/NOV/2011 875MG AND 15/DEC2011 900MG
     Route: 042
     Dates: start: 20111027, end: 20120216
  6. DIPHENHYDRAMINE HCL [Concomitant]
     Indication: PREMEDICATION
     Route: 048
     Dates: start: 20120216, end: 20120216

REACTIONS (1)
  - ARTERIOSPASM CORONARY [None]
